FAERS Safety Report 7586128-6 (Version None)
Quarter: 2011Q2

REPORT INFORMATION
  Report Type: 
  Country: None (occurrence: None)
  Receive Date: 20110603
  Receipt Date: 20110325
  Transmission Date: 20111010
  Serious: Yes (Other)
  Sender: FDA-Public Use
  Company Number: CTI_01339_2011

PATIENT
  Sex: Female

DRUGS (2)
  1. FACTIVE [Suspect]
     Indication: BRONCHITIS BACTERIAL
     Dosage: (DF)
  2. FACTIVE [Suspect]
     Indication: PNEUMONIA
     Dosage: (DF)

REACTIONS (2)
  - HYPERSENSITIVITY [None]
  - RASH [None]
